FAERS Safety Report 23389449 (Version 1)
Quarter: 2024Q1

REPORT INFORMATION
  Report Type: Spontaneous
  Country: CA (occurrence: CA)
  Receive Date: 20240110
  Receipt Date: 20240110
  Transmission Date: 20240409
  Serious: Yes (Other)
  Sender: FDA-Public Use
  Company Number: CA-DRL-USA-SPO/CAN/24/0000269

PATIENT
  Age: 64 Year
  Sex: Female

DRUGS (2)
  1. PEMETREXED [Suspect]
     Active Substance: PEMETREXED
     Indication: Product used for unknown indication
     Route: 042
  2. PEMETREXED [Suspect]
     Active Substance: PEMETREXED
     Route: 042

REACTIONS (2)
  - Ocular toxicity [Unknown]
  - Renal failure [Unknown]
